FAERS Safety Report 7282916-4 (Version None)
Quarter: 2011Q1

REPORT INFORMATION
  Report Type: 
  Country: None (occurrence: None)
  Receive Date: 20110209
  Receipt Date: 20110106
  Transmission Date: 20110831
  Serious: Yes (Other)
  Sender: FDA-Public Use
  Company Number: US-BAYER-200943871NA

PATIENT
  Sex: Female
  Weight: 95 kg

DRUGS (22)
  1. HYDROCODONE BITARTRATE AND ACETAMINOPHEN [Concomitant]
     Dosage: UNK
     Dates: start: 20071229
  2. TRIAMTERENE [Concomitant]
     Dosage: UNK
     Dates: start: 20071203
  3. NORVASC [Concomitant]
     Indication: HYPERTENSION
     Dosage: UNK
     Dates: start: 20100101
  4. YASMIN [Suspect]
     Dosage: UNK
     Dates: start: 20090701, end: 20091201
  5. DICLOFENAC SODIUM [Concomitant]
     Indication: BACK PAIN
     Dosage: UNK
     Dates: start: 20050101
  6. ELAVIL [Concomitant]
     Indication: DEPRESSION
     Dosage: UNK
     Dates: start: 20071214
  7. YASMIN [Suspect]
     Indication: PRODUCT USED FOR UNKNOWN INDICATION
     Dosage: UNK UNK, QD
     Dates: start: 20070101, end: 20071201
  8. YAZ [Suspect]
     Indication: PRODUCT USED FOR UNKNOWN INDICATION
     Dosage: UNK
     Dates: start: 20080101, end: 20100101
  9. IMITREX [Concomitant]
     Indication: MIGRAINE
     Dosage: UNK
     Dates: start: 20070928
  10. SULFAMETHOXAZOLE [Concomitant]
     Dosage: UNK
     Dates: start: 20071108
  11. SYNTHROID [Concomitant]
     Indication: HYPOTHYROIDISM
     Dosage: UNK
     Dates: start: 20100101
  12. PAROXETINE HCL [Concomitant]
     Dosage: UNK
     Dates: start: 20070912
  13. ALLEGRA [Concomitant]
     Indication: MULTIPLE ALLERGIES
     Dosage: UNK
     Route: 048
     Dates: start: 20070101
  14. KLOR-CON [Concomitant]
     Indication: BLOOD POTASSIUM DECREASED
     Dosage: UNK
     Dates: start: 20090101
  15. NEXIUM [Concomitant]
     Indication: GASTROOESOPHAGEAL REFLUX PROPHYLAXIS
     Dosage: UNK
     Dates: start: 20090101
  16. YAZ [Suspect]
     Dosage: UNK
     Dates: start: 20100101
  17. CYMBALTA [Concomitant]
     Indication: DEPRESSION
     Dosage: UNK
     Dates: start: 20071213
  18. FEXOFENADINE [Concomitant]
     Dosage: UNK
     Dates: start: 20071203
  19. MIRAPEX [Concomitant]
     Dosage: UNK
     Dates: start: 20070912
  20. LAMICTAL [Concomitant]
     Indication: CONVULSION
     Dosage: UNK
     Dates: start: 20090101
  21. HYDROCHLOROTHIAZIDE [Concomitant]
     Indication: SWELLING
     Dosage: UNK
     Dates: start: 20020101
  22. VOLTAREN [Concomitant]
     Dosage: UNK

REACTIONS (6)
  - CHOLECYSTITIS [None]
  - CHOLELITHIASIS [None]
  - ABDOMINAL PAIN [None]
  - ABDOMINAL PAIN UPPER [None]
  - PAIN [None]
  - VAGINAL HAEMORRHAGE [None]
